FAERS Safety Report 15755299 (Version 6)
Quarter: 2023Q1

REPORT INFORMATION
  Report Type: Spontaneous
  Country: SI (occurrence: SI)
  Receive Date: 20181224
  Receipt Date: 20230330
  Transmission Date: 20230418
  Serious: Yes (Death, Hospitalization, Other)
  Sender: FDA-Public Use
  Company Number: None

PATIENT
  Age: 82 Year
  Sex: Female

DRUGS (10)
  1. PRADAXA [Suspect]
     Active Substance: DABIGATRAN ETEXILATE MESYLATE
     Indication: Atrial fibrillation
     Route: 048
  2. PRADAXA [Suspect]
     Active Substance: DABIGATRAN ETEXILATE MESYLATE
     Indication: Anticoagulant therapy
  3. PRADAXA [Suspect]
     Active Substance: DABIGATRAN ETEXILATE MESYLATE
     Indication: Transient ischaemic attack
  4. WARFARIN SODIUM [Suspect]
     Active Substance: WARFARIN SODIUM
     Indication: Anticoagulant therapy
     Dosage: UNK
     Route: 048
  5. WARFARIN SODIUM [Suspect]
     Active Substance: WARFARIN SODIUM
     Indication: Chronic kidney disease
  6. BISOPROLOL [Concomitant]
     Active Substance: BISOPROLOL
     Indication: Product used for unknown indication
  7. MEMANTINE [Concomitant]
     Active Substance: MEMANTINE
     Indication: Cognitive disorder
     Route: 065
  8. INSULIN NOS [Concomitant]
     Active Substance: INSULIN NOS
     Indication: Type 2 diabetes mellitus
     Route: 065
  9. ROSUVASTATIN [Concomitant]
     Active Substance: ROSUVASTATIN
     Indication: Product used for unknown indication
  10. LEVOTHYROXINE [Concomitant]
     Active Substance: LEVOTHYROXINE
     Indication: Product used for unknown indication

REACTIONS (22)
  - Condition aggravated [Fatal]
  - Anticoagulant-related nephropathy [Fatal]
  - Septic shock [Fatal]
  - Haematoma infection [Fatal]
  - Haematuria [Recovering/Resolving]
  - Gastrointestinal haemorrhage [Unknown]
  - Anticoagulant-related nephropathy [Recovering/Resolving]
  - Haematuria [Recovering/Resolving]
  - Normocytic anaemia [Recovering/Resolving]
  - Disease recurrence [Unknown]
  - Renal tubular injury [Recovering/Resolving]
  - Renal impairment [Recovering/Resolving]
  - Gastric occult blood positive [Recovering/Resolving]
  - Haemorrhage [Unknown]
  - Subcapsular renal haematoma [Unknown]
  - Confusional state [Unknown]
  - Acute kidney injury [Recovering/Resolving]
  - Blood creatinine increased [Recovering/Resolving]
  - Hyponatraemia [Unknown]
  - Renal impairment [Recovering/Resolving]
  - Anticoagulation drug level increased [Recovering/Resolving]
  - Anticoagulation drug level above therapeutic [Recovering/Resolving]
